FAERS Safety Report 4665265-X (Version None)
Quarter: 2005Q2

REPORT INFORMATION
  Report Type: 
  Country: None (occurrence: None)
  Receive Date: 20050517
  Receipt Date: 20050510
  Transmission Date: 20051028
  Serious: Yes (Other)
  Sender: FDA-Public Use
  Company Number: USA-2005-0019434

PATIENT
  Age: 61 Year
  Sex: Male
  Weight: 70.7 kg

DRUGS (5)
  1. OXYCONTIN [Suspect]
     Indication: BACK PAIN
     Dosage: 40 MG, SEE TEXT, ORAL
     Route: 048
  2. XANAX [Concomitant]
  3. LOTENSIN [Concomitant]
  4. TOPROL-XL [Concomitant]
  5. OXYCODONE HCL [Concomitant]

REACTIONS (4)
  - ABDOMINAL PAIN UPPER [None]
  - BILIARY TRACT DISORDER [None]
  - PHARMACEUTICAL PRODUCT COMPLAINT [None]
  - SWELLING [None]
